FAERS Safety Report 6835284-3 (Version None)
Quarter: 2010Q3

REPORT INFORMATION
  Report Type: 
  Country: None (occurrence: None)
  Receive Date: 20100713
  Receipt Date: 20100701
  Transmission Date: 20110219
  Serious: Yes (Life-Threatening)
  Sender: FDA-Public Use
  Company Number: RU-JNJFOC-20100700870

PATIENT
  Sex: Female

DRUGS (12)
  1. GOLIMUMAB [Suspect]
     Indication: RHEUMATOID ARTHRITIS
     Route: 058
  2. GOLIMUMAB [Suspect]
     Route: 058
  3. PLACEBO [Suspect]
     Indication: RHEUMATOID ARTHRITIS
     Route: 058
  4. PLACEBO [Suspect]
     Route: 058
  5. METHOTREXATE [Suspect]
     Indication: RHEUMATOID ARTHRITIS
     Route: 048
  6. METHOTREXATE [Suspect]
     Route: 048
  7. IBUPROFEN [Concomitant]
     Route: 048
  8. FOLIC ACID [Concomitant]
     Route: 048
  9. LEVOTHYROXINE SODIUM [Concomitant]
     Route: 048
  10. METHOTREXATE [Concomitant]
     Route: 048
  11. VINPOCETINE [Concomitant]
     Route: 048
  12. ACETYLSALICYLIC ACID [Concomitant]
     Route: 048

REACTIONS (1)
  - METASTATIC UTERINE CANCER [None]
